FAERS Safety Report 9482084 (Version 4)
Quarter: 2013Q4

REPORT INFORMATION
  Report Type: Spontaneous
  Country: JP (occurrence: JP)
  Receive Date: 20130828
  Receipt Date: 20131106
  Transmission Date: 20140711
  Serious: Yes (Hospitalization)
  Sender: FDA-Public Use
  Company Number: PHHY2013JP083127

PATIENT
  Age: 80 Year
  Sex: Male
  Weight: 48 kg

DRUGS (4)
  1. LAMISIL [Suspect]
     Indication: NAIL CANDIDA
     Dosage: 125 MG, DAILY
     Route: 048
     Dates: start: 20130515, end: 20130623
  2. PREDNISOLONE [Concomitant]
     Indication: DERMATOMYOSITIS
     Dosage: 6 MG, DAILY
     Route: 048
     Dates: start: 2005
  3. MARZULENE-S [Concomitant]
     Indication: GASTRIC ULCER
     Dosage: 1 MG, UNK
     Route: 048
     Dates: start: 2007
  4. BONALON [Concomitant]
     Indication: OSTEOPOROSIS
     Dosage: 35 MG, UNK
     Route: 048
     Dates: start: 2007

REACTIONS (2)
  - Drug-induced liver injury [Recovering/Resolving]
  - Bilirubinuria [Unknown]
